FAERS Safety Report 9382940 (Version 1)
Quarter: 2013Q3

REPORT INFORMATION
  Report Type: Spontaneous
  Country: PL (occurrence: PL)
  Receive Date: 20130703
  Receipt Date: 20130703
  Transmission Date: 20140515
  Serious: Yes (Hospitalization)
  Sender: FDA-Public Use
  Company Number: PL-ABBOTT-13P-129-1113442-00

PATIENT
  Age: 53 Year
  Sex: Female

DRUGS (2)
  1. ADALIMUMAB [Suspect]
     Indication: PSORIASIS
     Route: 058
     Dates: start: 201008, end: 201012
  2. ADALIMUMAB [Suspect]
     Indication: PSORIATIC ARTHROPATHY
     Route: 058
     Dates: start: 201102, end: 201103

REACTIONS (4)
  - Lung disorder [Recovered/Resolved]
  - General physical health deterioration [Recovered/Resolved]
  - Psoriasis [Recovering/Resolving]
  - Mycobacterium tuberculosis complex test positive [Unknown]
